FAERS Safety Report 8819564 (Version 1)
Quarter: 2012Q4

REPORT INFORMATION
  Report Type: 
  Country: FR (occurrence: FR)
  Receive Date: 20121001
  Receipt Date: 20121001
  Transmission Date: 20130627
  Serious: Yes (Hospitalization)
  Sender: FDA-Public Use
  Company Number: FR-ABBOTT-12P-056-0986317-00

PATIENT
  Age: 68 Year
  Sex: Male

DRUGS (4)
  1. ZECLAR [Suspect]
     Indication: MYCOBACTERIAL INFECTION
     Route: 048
     Dates: start: 20120627
  2. ZYVOXID [Suspect]
     Indication: MYCOBACTERIAL INFECTION
     Dates: start: 20120727, end: 20120731
  3. TIGECYCLINE [Concomitant]
     Indication: MYCOBACTERIAL INFECTION
  4. TOBRAMYCINE [Concomitant]
     Indication: MYCOBACTERIAL INFECTION

REACTIONS (2)
  - Rash maculo-papular [Recovered/Resolved]
  - Toxic skin eruption [Recovered/Resolved]
